FAERS Safety Report 18905293 (Version 1)
Quarter: 2021Q1

REPORT INFORMATION
  Report Type: Spontaneous
  Country: US (occurrence: US)
  Receive Date: 20210217
  Receipt Date: 20210217
  Transmission Date: 20210420
  Serious: No
  Sender: FDA-Public Use
  Company Number: US-009507513-2102USA003375

PATIENT
  Age: 41 Year
  Sex: Female

DRUGS (3)
  1. GANIRELIX ACETATE INJECTION [Suspect]
     Active Substance: GANIRELIX ACETATE
     Dosage: 1 SYR, QD
     Route: 058
     Dates: start: 20210204
  2. FOLLISTIM AQ [Suspect]
     Active Substance: FOLLITROPIN
     Indication: INFERTILITY FEMALE
     Dosage: 225 UNITS, QD
     Route: 058
     Dates: start: 20210121
  3. MENOPUR [Concomitant]
     Active Substance: FOLLITROPIN\LUTEINIZING HORMONE
     Dosage: UNK

REACTIONS (4)
  - Pruritus [Unknown]
  - Chills [Unknown]
  - Swelling [Unknown]
  - Pyrexia [Unknown]

NARRATIVE: CASE EVENT DATE: 20210205
